FAERS Safety Report 16692944 (Version 1)
Quarter: 2019Q3

REPORT INFORMATION
  Report Type: Spontaneous
  Country: FR (occurrence: FR)
  Receive Date: 20190812
  Receipt Date: 20190812
  Transmission Date: 20191004
  Serious: Yes (Life-Threatening, Other)
  Sender: FDA-Public Use
  Company Number: FR-MYLANLABS-2019M1074201

PATIENT
  Age: 60 Year
  Sex: Male
  Weight: 80 kg

DRUGS (26)
  1. CYTARABINE EBEWE [Suspect]
     Active Substance: CYTARABINE
     Indication: MANTLE CELL LYMPHOMA
     Dosage: 200 MILLIGRAM/SQ. METER, QD
     Route: 042
     Dates: start: 20181213, end: 20181218
  2. EMEND [Suspect]
     Active Substance: APREPITANT
     Indication: PROPHYLAXIS OF NAUSEA AND VOMITING
     Dosage: 80 MILLIGRAM, QD
     Route: 048
     Dates: start: 20181213, end: 20181218
  3. PARACETAMOL [Concomitant]
     Active Substance: ACETAMINOPHEN
     Dosage: UNK
  4. LANSOPRAZOLE MYLAN 15 MG, COMPRIM? ORODISPERSIBLE [Suspect]
     Active Substance: LANSOPRAZOLE
     Indication: PRODUCT USED FOR UNKNOWN INDICATION
     Dosage: 2 DOSAGE FORM, QD
     Route: 048
     Dates: start: 20190201, end: 20190213
  5. EPITOMAX [Suspect]
     Active Substance: TOPIRAMATE
     Indication: ESSENTIAL TREMOR
     Dosage: 1 DOSAGE FORM, QD
     Route: 048
     Dates: end: 20181225
  6. INNOHEP [Suspect]
     Active Substance: TINZAPARIN SODIUM
     Indication: THROMBOSIS PROPHYLAXIS
     Dosage: 1 DOSAGE FORM, QD
     Route: 058
     Dates: start: 20181213, end: 20190219
  7. AMBISOME [Suspect]
     Active Substance: AMPHOTERICIN B
     Indication: SYSTEMIC CANDIDA
     Dosage: 250 MILLIGRAM, QD
     Route: 042
     Dates: start: 20190129, end: 20190210
  8. TOPIRAMATE. [Concomitant]
     Active Substance: TOPIRAMATE
     Dosage: UNK
  9. GABAPENTINE [Concomitant]
     Active Substance: GABAPENTIN
     Dosage: UNK
  10. EZETIMIBE MYLAN 10 MG COMPRIM?S [Suspect]
     Active Substance: EZETIMIBE
     Indication: DYSLIPIDAEMIA
     Dosage: 10 MILLIGRAM, QD
     Route: 048
     Dates: end: 20181225
  11. CHIBRO CADRON [Suspect]
     Active Substance: DEXAMETHASONE SODIUM PHOSPHATE\NEOMYCIN SULFATE
     Indication: PRODUCT USED FOR UNKNOWN INDICATION
     Dosage: 3 GTT DROPS, QD
     Route: 047
     Dates: start: 20181214, end: 20181223
  12. CELECTOL [Suspect]
     Active Substance: CELIPROLOL HYDROCHLORIDE
     Indication: HYPERTENSION
     Dosage: 1 DOSAGE FORM, QD
     Route: 048
     Dates: end: 20181224
  13. VALACYCLOVIR [Suspect]
     Active Substance: VALACYCLOVIR HYDROCHLORIDE
     Indication: PROPHYLAXIS
     Dosage: 500 MILLIGRAM, QD
     Route: 048
     Dates: start: 20181212, end: 20181225
  14. INSULATARD                         /00646002/ [Suspect]
     Active Substance: INSULIN HUMAN
     Indication: DIABETES MELLITUS
     Dosage: 30 INTERNATIONAL UNIT, QD
     Route: 051
     Dates: start: 20190130, end: 20190211
  15. BISOPROLOL [Concomitant]
     Active Substance: BISOPROLOL
     Dosage: UNK
  16. MELPHALAN. [Suspect]
     Active Substance: MELPHALAN
     Indication: MANTLE CELL LYMPHOMA
     Dosage: 140 MILLIGRAM/SQ. METER, QD
     Route: 042
     Dates: start: 20181213, end: 20181218
  17. GABAPENTINE ARROW [Suspect]
     Active Substance: GABAPENTIN
     Indication: NEUROPATHY PERIPHERAL
     Dosage: 800MG 4/J + 400MG 1/J
     Route: 048
     Dates: end: 20181224
  18. VALACYCLOVIR [Suspect]
     Active Substance: VALACYCLOVIR HYDROCHLORIDE
     Dosage: 1 DOSAGE FORM, QD
     Route: 048
     Dates: start: 20190116, end: 20190206
  19. CEFTRIAXONE MYLAN 1 G, POUDRE POUR SOLUTION INJECTABLE [Suspect]
     Active Substance: CEFTRIAXONE
     Indication: SEPSIS
     Dosage: 1 GRAM, QD
     Route: 042
     Dates: start: 20181215, end: 20181222
  20. BICNU [Suspect]
     Active Substance: CARMUSTINE
     Indication: MANTLE CELL LYMPHOMA
     Dosage: 300 MILLIGRAM/SQ. METER
     Route: 042
     Dates: start: 20181213, end: 20181218
  21. IMOVANE [Suspect]
     Active Substance: ZOPICLONE
     Indication: INSOMNIA
     Dosage: 3.75 MILLIGRAM, QD
     Route: 048
     Dates: end: 20181224
  22. FUNGIZONE [Suspect]
     Active Substance: AMPHOTERICIN B
     Indication: SYSTEMIC CANDIDA
     Dosage: 5 DOSAGE FORM, QD
     Route: 002
     Dates: start: 20190124
  23. INSULINE                           /01223401/ [Concomitant]
     Active Substance: INSULIN NOS
     Dosage: UNK
  24. ONDANSETRON [Concomitant]
     Active Substance: ONDANSETRON
     Dosage: UNK
  25. EZETIMIBE. [Concomitant]
     Active Substance: EZETIMIBE
     Dosage: UNK
  26. ETOPOSIDE. [Suspect]
     Active Substance: ETOPOSIDE
     Indication: MANTLE CELL LYMPHOMA
     Dosage: 400 MILLIGRAM/SQ. METER, QD
     Route: 042
     Dates: start: 20181213, end: 20181218

REACTIONS (5)
  - Pruritus generalised [Recovering/Resolving]
  - Pruritus [Recovered/Resolved]
  - Aplasia [Recovering/Resolving]
  - Rash erythematous [Recovered/Resolved]
  - Erythema [Recovered/Resolved]

NARRATIVE: CASE EVENT DATE: 20181218
